FAERS Safety Report 5150735-0 (Version None)
Quarter: 2006Q4

REPORT INFORMATION
  Report Type: 
  Country: None (occurrence: None)
  Receive Date: 20061108
  Receipt Date: 20061026
  Transmission Date: 20070319
  Serious: Yes (Hospitalization)
  Sender: FDA-Public Use
  Company Number: 2006125512

PATIENT
  Age: 59 Year
  Sex: Female
  Weight: 55.1 kg

DRUGS (9)
  1. SUTENT [Suspect]
     Indication: RENAL CELL CARCINOMA STAGE UNSPECIFIED
     Dosage: 37.5 MG (37.5 MG, 1 IN 1 D), ORAL
     Route: 048
     Dates: start: 20060420, end: 20060920
  2. CORTEF [Concomitant]
  3. SYNTHROID [Concomitant]
  4. RANITIDINE [Concomitant]
  5. MAGIC MOUTHWASH (ALUMINIUM HYDROXIDE, DIPHENHYDRAMINE HYDROCHLORIDE, L [Concomitant]
  6. COLACE (DOCUSATE SODIUM) [Concomitant]
  7. LACTULOSE [Concomitant]
  8. VALSARTAN [Concomitant]
  9. HYDROCHLOROTHIAZIDE [Concomitant]

REACTIONS (5)
  - CONFUSIONAL STATE [None]
  - CONSTIPATION [None]
  - DISEASE PROGRESSION [None]
  - HYPERTENSION [None]
  - ORAL PAIN [None]
